FAERS Safety Report 4695109-1 (Version None)
Quarter: 2005Q2

REPORT INFORMATION
  Report Type: 
  Country: None (occurrence: None)
  Receive Date: 20050620
  Receipt Date: 20050314
  Transmission Date: 20051028
  Serious: Yes (Hospitalization)
  Sender: FDA-Public Use
  Company Number: US-MERCK-0503USA02929

PATIENT
  Age: 56 Year
  Sex: Male
  Weight: 100 kg

DRUGS (11)
  1. VIOXX [Suspect]
     Indication: ARTHRITIS
     Route: 048
     Dates: start: 19991001, end: 20040901
  2. DURAGESIC-100 [Concomitant]
     Route: 061
     Dates: start: 19981119, end: 20040901
  3. OXYCODONE [Concomitant]
     Route: 065
     Dates: start: 20010501, end: 20020701
  4. OXYCODONE [Concomitant]
     Route: 065
     Dates: start: 19981111
  5. NEURONTIN [Concomitant]
     Indication: PAIN
     Route: 065
     Dates: start: 20010523, end: 20020101
  6. HYDROCODONE HYDROCHLORIDE [Concomitant]
     Route: 065
     Dates: start: 20020727
  7. ZESTRIL [Concomitant]
     Indication: HYPERTENSION
     Route: 065
     Dates: start: 20000303
  8. ZESTRIL [Concomitant]
     Route: 065
     Dates: start: 20020602
  9. LIPITOR [Concomitant]
     Indication: BLOOD CHOLESTEROL INCREASED
     Route: 065
     Dates: start: 19981109
  10. ZOLOFT [Concomitant]
     Indication: DEPRESSION
     Route: 065
     Dates: start: 20030228
  11. OXYCODONE [Concomitant]
     Route: 065
     Dates: start: 20010501, end: 20020701

REACTIONS (9)
  - ANGINA PECTORIS [None]
  - ATHEROSCLEROSIS [None]
  - BLOOD CHOLESTEROL INCREASED [None]
  - DENTAL DISCOMFORT [None]
  - HYPERTENSION [None]
  - MYOCARDIAL INFARCTION [None]
  - NARCOLEPSY [None]
  - PAIN [None]
  - SEASONAL ALLERGY [None]
